FAERS Safety Report 7720107-0 (Version None)
Quarter: 2011Q3

REPORT INFORMATION
  Report Type: 
  Country: None (occurrence: None)
  Receive Date: 20110824
  Receipt Date: 20110812
  Transmission Date: 20111222
  Serious: Yes (Other)
  Sender: FDA-Public Use
  Company Number: 2011MA012060

PATIENT
  Age: 43 Year
  Sex: Female

DRUGS (4)
  1. TEMAZEPAM [Suspect]
     Indication: DEPRESSION
     Dosage: 20 MG;
     Dates: start: 20080828
  2. LANSOPRAZOLE [Suspect]
     Dosage: 15 MG;QD;
  3. DULOXETINE HYDROCHLORIDE [Suspect]
     Indication: DEPRESSION
     Dosage: 60 MG;
     Dates: start: 20080828
  4. QUETIAPINE FUMARATE [Suspect]
     Dosage: 250 MG;QD;
     Dates: start: 20080828

REACTIONS (1)
  - OPTIC NEURITIS [None]
